FAERS Safety Report 6401721-1 (Version None)
Quarter: 2009Q4

REPORT INFORMATION
  Report Type: 
  Country: None (occurrence: None)
  Receive Date: 20091015
  Receipt Date: 20091006
  Transmission Date: 20100525
  Serious: Yes (Hospitalization, Other)
  Sender: FDA-Public Use
  Company Number: US-ELI_LILLY_AND_COMPANY-US200910001237

PATIENT
  Sex: Female

DRUGS (6)
  1. FORTEO [Suspect]
     Dosage: 20 UG, DAILY (1/D)
     Dates: start: 20060101
  2. RECLAST [Concomitant]
     Dosage: UNK, OTHER
  3. LISINOPRIL [Concomitant]
     Indication: BLOOD PRESSURE
  4. HYDROCHLOROTHIAZIDE [Concomitant]
     Indication: DIURETIC THERAPY
  5. ADVAIR DISKUS 100/50 [Concomitant]
     Route: 055
  6. VITAMIN B12 NOS W/VITAMIN B6 [Concomitant]

REACTIONS (4)
  - ARTHROPATHY [None]
  - DEPRESSED LEVEL OF CONSCIOUSNESS [None]
  - GENERAL PHYSICAL HEALTH DETERIORATION [None]
  - HIP FRACTURE [None]
